FAERS Safety Report 21830173 (Version 2)
Quarter: 2023Q1

REPORT INFORMATION
  Report Type: Report from Study
  Country: US (occurrence: US)
  Receive Date: 20230106
  Receipt Date: 20230308
  Transmission Date: 20230417
  Serious: No
  Sender: FDA-Public Use
  Company Number: US-ABBVIE-4225870

PATIENT
  Sex: Female

DRUGS (2)
  1. SKYRIZI [Suspect]
     Active Substance: RISANKIZUMAB-RZAA
     Indication: Psoriasis
     Dosage: WEEK 0,?FORM STRENGTH: 150 MG
     Route: 058
     Dates: start: 20221111, end: 20221111
  2. SKYRIZI [Suspect]
     Active Substance: RISANKIZUMAB-RZAA
     Indication: Psoriasis
     Dosage: WEEK 4,?FORM STRENGTH: 150 MG
     Route: 058
     Dates: start: 202212

REACTIONS (6)
  - Pruritus [Unknown]
  - Pain [Unknown]
  - Erythema [Unknown]
  - Fatigue [Recovered/Resolved]
  - Burning sensation [Unknown]
  - Pain in extremity [Unknown]
